FAERS Safety Report 18318931 (Version 1)
Quarter: 2020Q3

REPORT INFORMATION
  Report Type: Other
  Country: CA (occurrence: CA)
  Receive Date: 20200928
  Receipt Date: 20200928
  Transmission Date: 20201103
  Serious: Yes (Other)
  Sender: FDA-Public Use
  Company Number: CA-CELLTRION INC.-2020CA027545

PATIENT

DRUGS (15)
  1. DEXILANT [Suspect]
     Active Substance: DEXLANSOPRAZOLE
     Indication: PRODUCT USED FOR UNKNOWN INDICATION
     Dosage: 60 MILLIGRAM, 1 EVERY 1 DAYS
     Route: 048
  2. ESTROGEL [Suspect]
     Active Substance: ESTRADIOL
     Indication: PRODUCT USED FOR UNKNOWN INDICATION
     Dosage: 1 EVERY 1 DAYS
     Route: 061
  3. METHOTREXATE. [Suspect]
     Active Substance: METHOTREXATE
     Dosage: UNK
     Route: 048
  4. BREO ELLIPTA [Suspect]
     Active Substance: FLUTICASONE FUROATE\VILANTEROL TRIFENATATE
     Indication: PRODUCT USED FOR UNKNOWN INDICATION
  5. VENTOLIN HFA [Suspect]
     Active Substance: ALBUTEROL SULFATE
     Indication: PRODUCT USED FOR UNKNOWN INDICATION
  6. RITUXIMAB (UNKNOWN) [Suspect]
     Active Substance: RITUXIMAB
     Indication: PRODUCT USED FOR UNKNOWN INDICATION
     Route: 065
  7. PLAQUENIL [Suspect]
     Active Substance: HYDROXYCHLOROQUINE SULFATE
     Indication: PRODUCT USED FOR UNKNOWN INDICATION
     Dosage: 200 MILLIGRAM, 2 EVERY 1 DAYS
     Route: 065
  8. ARAVA [Suspect]
     Active Substance: LEFLUNOMIDE
     Indication: PRODUCT USED FOR UNKNOWN INDICATION
     Dosage: UNK
     Route: 065
  9. SULFASALAZINE. [Suspect]
     Active Substance: SULFASALAZINE
     Indication: PRODUCT USED FOR UNKNOWN INDICATION
     Route: 065
  10. CELEBREX [Suspect]
     Active Substance: CELECOXIB
     Indication: MYALGIA
     Route: 065
  11. MELOXICAM. [Suspect]
     Active Substance: MELOXICAM
     Indication: MYALGIA
     Route: 065
  12. BELIMUMAB [Suspect]
     Active Substance: BELIMUMAB
     Indication: PRODUCT USED FOR UNKNOWN INDICATION
     Route: 065
  13. COLCHICINE. [Suspect]
     Active Substance: COLCHICINE
     Indication: PRODUCT USED FOR UNKNOWN INDICATION
     Route: 065
  14. METHOTREXATE. [Suspect]
     Active Substance: METHOTREXATE
     Indication: PRODUCT USED FOR UNKNOWN INDICATION
     Dosage: UNK
     Route: 042
  15. PREDNISONE. [Suspect]
     Active Substance: PREDNISONE
     Indication: PRODUCT USED FOR UNKNOWN INDICATION
     Dosage: 50 MILLIGRAM
     Route: 065

REACTIONS (23)
  - Blister [Not Recovered/Not Resolved]
  - Nausea [Not Recovered/Not Resolved]
  - Peripheral swelling [Not Recovered/Not Resolved]
  - Systemic lupus erythematosus [Not Recovered/Not Resolved]
  - Myalgia [Not Recovered/Not Resolved]
  - Musculoskeletal stiffness [Not Recovered/Not Resolved]
  - Vasculitis [Not Recovered/Not Resolved]
  - Leukopenia [Not Recovered/Not Resolved]
  - Antinuclear antibody positive [Not Recovered/Not Resolved]
  - Arthritis [Not Recovered/Not Resolved]
  - Joint swelling [Not Recovered/Not Resolved]
  - Menorrhagia [Not Recovered/Not Resolved]
  - Rheumatoid arthritis [Not Recovered/Not Resolved]
  - Hypersensitivity vasculitis [Not Recovered/Not Resolved]
  - Lip swelling [Not Recovered/Not Resolved]
  - Lymphadenopathy [Not Recovered/Not Resolved]
  - Parotid gland enlargement [Not Recovered/Not Resolved]
  - Sjogren^s syndrome [Not Recovered/Not Resolved]
  - Headache [Not Recovered/Not Resolved]
  - Hypoaesthesia [Not Recovered/Not Resolved]
  - Abdominal discomfort [Not Recovered/Not Resolved]
  - Dry mouth [Not Recovered/Not Resolved]
  - Arthralgia [Not Recovered/Not Resolved]
